FAERS Safety Report 6528082-1 (Version None)
Quarter: 2010Q1

REPORT INFORMATION
  Report Type: 
  Country: None (occurrence: None)
  Receive Date: 20100105
  Receipt Date: 20100105
  Transmission Date: 20100710
  Serious: Yes (Hospitalization)
  Sender: FDA-Public Use
  Company Number: None

PATIENT
  Age: 62 Year
  Sex: Male
  Weight: 111.1 kg

DRUGS (1)
  1. INSULIN [Suspect]
     Indication: TYPE 1 DIABETES MELLITUS
     Dosage: 60 UNITS ONCE SQ
     Route: 058
     Dates: start: 20081231, end: 20091230

REACTIONS (2)
  - HYPOGLYCAEMIA [None]
  - WRONG DRUG ADMINISTERED [None]
